FAERS Safety Report 21980675 (Version 1)
Quarter: 2023Q1

REPORT INFORMATION
  Report Type: Spontaneous
  Country: US (occurrence: US)
  Receive Date: 20230211
  Receipt Date: 20230211
  Transmission Date: 20230418
  Serious: No
  Sender: FDA-Public Use
  Company Number: US-002147023-NVSC2023US029025

PATIENT
  Sex: Male

DRUGS (1)
  1. LEQVIO [Suspect]
     Active Substance: INCLISIRAN SODIUM
     Indication: Low density lipoprotein increased
     Dosage: 284 MG, OTHER (1 MONTH, 3 MONTHS AND 6 MONTHS)
     Route: 058

REACTIONS (3)
  - Vomiting [Recovered/Resolved]
  - Illness [Unknown]
  - Influenza [Unknown]
